FAERS Safety Report 6911031-1 (Version None)
Quarter: 2010Q3

REPORT INFORMATION
  Report Type: 
  Country: None (occurrence: None)
  Receive Date: 20100806
  Receipt Date: 20100804
  Transmission Date: 20110219
  Serious: Yes (Death)
  Sender: FDA-Public Use
  Company Number: A0874245A

PATIENT
  Sex: Female

DRUGS (2)
  1. PROMACTA [Suspect]
     Indication: IDIOPATHIC THROMBOCYTOPENIC PURPURA
     Dosage: 750MG PER DAY
     Dates: start: 20100213
  2. CORTICOSTEROIDS [Concomitant]

REACTIONS (1)
  - DEATH [None]
